FAERS Safety Report 8419793-1 (Version None)
Quarter: 2012Q2

REPORT INFORMATION
  Report Type: 
  Country: None (occurrence: None)
  Receive Date: 20120607
  Receipt Date: 20120604
  Transmission Date: 20120825
  Serious: Yes (Other)
  Sender: FDA-Public Use
  Company Number: US-TEVA-334304USA

PATIENT
  Sex: Female

DRUGS (4)
  1. PAROXETINE HCL [Concomitant]
  2. CLARAVIS [Suspect]
     Dosage: 40 MILLIGRAM;
     Route: 048
     Dates: start: 20120202, end: 20120401
  3. ALPRAZOLAM [Concomitant]
  4. TRAMADOL HCL [Concomitant]

REACTIONS (3)
  - ABORTION SPONTANEOUS [None]
  - BLIGHTED OVUM [None]
  - UNINTENDED PREGNANCY [None]
